FAERS Safety Report 9472507 (Version 2)
Quarter: 2014Q1

REPORT INFORMATION
  Report Type: Report from Study
  Country: AU (occurrence: AU)
  Receive Date: 20130823
  Receipt Date: 20140103
  Transmission Date: 20141002
  Serious: Yes (Other)
  Sender: FDA-Public Use
  Company Number: PHHY2013AU091309

PATIENT
  Age: 82 Year
  Sex: Male

DRUGS (1)
  1. ACLASTA [Suspect]
     Dosage: 5 MG, UNK
     Route: 042
     Dates: start: 20120815

REACTIONS (3)
  - Dementia [Not Recovered/Not Resolved]
  - Blood glucose increased [Recovered/Resolved]
  - Vitamin D decreased [Unknown]
